FAERS Safety Report 5341454-6 (Version None)
Quarter: 2007Q2

REPORT INFORMATION
  Report Type: 
  Country: None (occurrence: None)
  Receive Date: 20070601
  Receipt Date: 20070523
  Transmission Date: 20071010
  Serious: Yes (Other)
  Sender: FDA-Public Use
  Company Number: PHEH2007US04477

PATIENT
  Age: 27 Year
  Sex: Female

DRUGS (4)
  1. ZELNORM [Suspect]
     Indication: IRRITABLE BOWEL SYNDROME
     Dosage: UNK, BID
     Route: 048
     Dates: start: 20040101, end: 20070201
  2. ALBUTEROL [Concomitant]
     Indication: ASTHMA
     Dosage: 2 PUFFS, PRN
     Dates: start: 19970101
  3. LISINOPRIL [Concomitant]
     Indication: HYPERTENSION
     Dosage: 15 MG, QD
     Dates: start: 19700101
  4. URSODIOL [Concomitant]
     Dosage: 300 MG, BID

REACTIONS (7)
  - ARRHYTHMIA [None]
  - ELECTROCARDIOGRAM ABNORMAL [None]
  - GASTRIC OPERATION [None]
  - HERNIA REPAIR [None]
  - PALPITATIONS [None]
  - SINUS TACHYCARDIA [None]
  - WEIGHT DECREASED [None]
